FAERS Safety Report 16062083 (Version 1)
Quarter: 2019Q1

REPORT INFORMATION
  Report Type: Spontaneous
  Country: KR (occurrence: KR)
  Receive Date: 20190312
  Receipt Date: 20190312
  Transmission Date: 20190418
  Serious: Yes (Other)
  Sender: FDA-Public Use
  Company Number: KR-CORDEN PHARMA LATINA S.P.A.-KR-2019COR000056

PATIENT
  Sex: Male

DRUGS (3)
  1. ETOPOSIDE. [Suspect]
     Active Substance: ETOPOSIDE
     Indication: NEUROBLASTOMA
     Dosage: 6.5 MG/M2
     Route: 065
  2. CYCLOPHOSPHAMIDE. [Suspect]
     Active Substance: CYCLOPHOSPHAMIDE
     Indication: NEUROBLASTOMA
     Dosage: 12.9 MG/M2
     Route: 065
  3. ANTHRACYCLINES AND RELATED SUBSTANCES [Suspect]
     Active Substance: UNSPECIFIED INGREDIENT
     Indication: NEUROBLASTOMA
     Dosage: 210 MG/M2
     Route: 065

REACTIONS (1)
  - Papillary thyroid cancer [Unknown]
